FAERS Safety Report 20137939 (Version 1)
Quarter: 2021Q4

REPORT INFORMATION
  Report Type: Spontaneous
  Country: CA (occurrence: CA)
  Receive Date: 20211202
  Receipt Date: 20211202
  Transmission Date: 20220303
  Serious: Yes (Death)
  Sender: FDA-Public Use
  Company Number: CA-drreddys-SPO/CAN/21/0144268

PATIENT
  Age: 65 Year
  Sex: Male

DRUGS (1)
  1. AZACITIDINE [Suspect]
     Active Substance: AZACITIDINE
     Indication: Acute myeloid leukaemia
     Dosage: 75MG/M^2 FOR 7 DAYS EVERY 28 DAYS
     Route: 051
     Dates: start: 20211008

REACTIONS (1)
  - Death [Fatal]
